FAERS Safety Report 14825537 (Version 2)
Quarter: 2018Q2

REPORT INFORMATION
  Report Type: Report from Study
  Country: NL (occurrence: NL)
  Receive Date: 20180430
  Receipt Date: 20180507
  Transmission Date: 20180711
  Serious: Yes (Hospitalization)
  Sender: FDA-Public Use
  Company Number: NL-ROCHE-2104460

PATIENT
  Age: 53 Year
  Sex: Female
  Weight: 69.7 kg

DRUGS (8)
  1. FLUOROURACIL. [Suspect]
     Active Substance: FLUOROURACIL
     Indication: COLORECTAL CANCER METASTATIC
     Dosage: DATE OF MOST RECENT DOSE OF STUDY DRUG PRIOR TO AE ONSET : 04/APR2018 (13 20)?1600-2400 MG/M2 VIA 46
     Route: 042
     Dates: start: 20180208
  2. GRANISETRON [Concomitant]
     Active Substance: GRANISETRON
     Route: 065
     Dates: start: 20180201, end: 20180204
  3. OXALIPLATIN. [Suspect]
     Active Substance: OXALIPLATIN
     Indication: COLORECTAL CANCER METASTATIC
     Dosage: DATE OF MOST RECENT DOSE OF STUDY DRUG PRIOR TO AE ONSET : 04/APR2018 (13 20)
     Route: 042
     Dates: start: 20180208
  4. BEVACIZUMAB. [Suspect]
     Active Substance: BEVACIZUMAB
     Indication: COLORECTAL CANCER METASTATIC
     Dosage: DATE OF MOST RECENT DOSE OF STUDY DRUG (350 MG) PRIOR TO AE ONSET : 04/APR2018 (10 03)
     Route: 042
     Dates: start: 20180208
  5. GRANISETRON [Concomitant]
     Active Substance: GRANISETRON
     Route: 065
     Dates: start: 20180219, end: 20180222
  6. FOLINIC ACID [Suspect]
     Active Substance: LEUCOVORIN
     Indication: COLORECTAL CANCER METASTATIC
     Dosage: DATE OF MOST RECENT DOSE OF STUDY DRUG PRIOR TO AE ONSET : 04/APR2018 (13 20)?2-HOUR INFUSION
     Route: 042
     Dates: start: 20180208
  7. GRANISETRON [Concomitant]
     Active Substance: GRANISETRON
     Route: 065
     Dates: start: 20180207, end: 20180210
  8. GRANISETRON [Concomitant]
     Active Substance: GRANISETRON
     Route: 065
     Dates: start: 20180307, end: 20180309

REACTIONS (1)
  - Influenza [Recovered/Resolved]

NARRATIVE: CASE EVENT DATE: 20180405
